FAERS Safety Report 17735250 (Version 1)
Quarter: 2020Q2

REPORT INFORMATION
  Report Type: Spontaneous
  Country: US (occurrence: US)
  Receive Date: 20200501
  Receipt Date: 20200501
  Transmission Date: 20200714
  Serious: Yes (Other)
  Sender: FDA-Public Use
  Company Number: US-TEVA-2020-US-1227455

PATIENT
  Sex: Male

DRUGS (4)
  1. FENTANYL. [Suspect]
     Active Substance: FENTANYL
     Indication: PRODUCT USED FOR UNKNOWN INDICATION
     Route: 065
  2. DILAUDID [Suspect]
     Active Substance: HYDROMORPHONE HYDROCHLORIDE
     Route: 065
  3. OXYCONTIN [Suspect]
     Active Substance: OXYCODONE HYDROCHLORIDE
     Indication: BACK PAIN
     Route: 065
  4. LORTAB [Suspect]
     Active Substance: ACETAMINOPHEN\HYDROCODONE BITARTRATE
     Route: 065

REACTIONS (6)
  - Phantom limb syndrome [Unknown]
  - Sleep disorder [Unknown]
  - Sexual dysfunction [Unknown]
  - Withdrawal syndrome [Unknown]
  - Drug dependence [Unknown]
  - Libido decreased [Unknown]
